FAERS Safety Report 4655963-6 (Version None)
Quarter: 2005Q2

REPORT INFORMATION
  Report Type: 
  Country: None (occurrence: None)
  Receive Date: 20050506
  Receipt Date: 20050506
  Transmission Date: 20051028
  Serious: Yes (Hospitalization)
  Sender: FDA-Public Use
  Company Number: None

PATIENT
  Age: 54 Year
  Sex: Female
  Weight: 87.0906 kg

DRUGS (5)
  1. PACLITAXEL [Suspect]
     Indication: TRANSITIONAL CELL CARCINOMA
     Dosage: 334 MG IV IN 500 M OF D5W
     Route: 042
  2. GLYBURIDE [Concomitant]
  3. FESO4 [Concomitant]
  4. PROPRANOLOL [Concomitant]
  5. TAPAZOLE [Concomitant]

REACTIONS (9)
  - CONVULSION [None]
  - CYANOSIS [None]
  - DYSPNOEA [None]
  - EYE ROLLING [None]
  - HYPOTENSION [None]
  - INFUSION RELATED REACTION [None]
  - LOSS OF CONSCIOUSNESS [None]
  - MUSCLE RIGIDITY [None]
  - MUSCULOSKELETAL STIFFNESS [None]
